FAERS Safety Report 23454007 (Version 1)
Quarter: 2024Q1

REPORT INFORMATION
  Report Type: Report from Study
  Country: CA (occurrence: CA)
  Receive Date: 20240130
  Receipt Date: 20240130
  Transmission Date: 20240409
  Serious: Yes (Other)
  Sender: FDA-Public Use
  Company Number: CA-ABBVIE-5604642

PATIENT
  Sex: Male

DRUGS (1)
  1. RINVOQ [Suspect]
     Active Substance: UPADACITINIB
     Indication: Crohn^s disease
     Dosage: FORM STRENGTH: 30 MILLIGRAM
     Route: 048
     Dates: start: 20231109, end: 2024

REACTIONS (5)
  - Ileectomy [Recovering/Resolving]
  - Abdominal abscess [Recovering/Resolving]
  - Flatulence [Recovering/Resolving]
  - Enteritis [Recovering/Resolving]
  - Abscess intestinal [Recovering/Resolving]
